FAERS Safety Report 18022755 (Version 2)
Quarter: 2020Q4

REPORT INFORMATION
  Report Type: Spontaneous
  Country: US (occurrence: US)
  Receive Date: 20200714
  Receipt Date: 20201016
  Transmission Date: 20210113
  Serious: Yes (Other)
  Sender: FDA-Public Use
  Company Number: US-PURDUE-USA-2020-0157174

PATIENT
  Sex: Male

DRUGS (4)
  1. OXYCODONE HYDROCHLORIDE. [Suspect]
     Active Substance: OXYCODONE HYDROCHLORIDE
     Indication: PAIN
     Dosage: 15 MG, UNK
     Route: 048
  2. METHADONE [Suspect]
     Active Substance: METHADONE HYDROCHLORIDE
     Indication: PRODUCT USED FOR UNKNOWN INDICATION
     Route: 048
  3. OXYCONTIN [Suspect]
     Active Substance: OXYCODONE HYDROCHLORIDE
     Indication: PAIN
     Dosage: 30 MG, UNK
     Route: 048
  4. OXYCONTIN [Suspect]
     Active Substance: OXYCODONE HYDROCHLORIDE
     Dosage: 40 MG, UNK
     Route: 048

REACTIONS (27)
  - Deafness [Unknown]
  - Eye irritation [Unknown]
  - Groin pain [Unknown]
  - Abdominal pain upper [Unknown]
  - Clumsiness [Unknown]
  - Cardiac failure congestive [Unknown]
  - Burning sensation [Unknown]
  - Blood cholesterol increased [Unknown]
  - Hypersomnia [Unknown]
  - Rhinorrhoea [Unknown]
  - Dyspnoea [Unknown]
  - Small cell lung cancer [Unknown]
  - Angina pectoris [Unknown]
  - Hypertension [Unknown]
  - Headache [Unknown]
  - Decreased appetite [Unknown]
  - Nausea [Not Recovered/Not Resolved]
  - Hypoaesthesia [Unknown]
  - Inflammation [Unknown]
  - Eye pain [Unknown]
  - Fatigue [Unknown]
  - Tooth fracture [Unknown]
  - Neuropathy peripheral [Unknown]
  - Mood swings [Unknown]
  - Lymphadenopathy [Unknown]
  - Dry eye [Unknown]
  - Vision blurred [Unknown]

NARRATIVE: CASE EVENT DATE: 2002
